FAERS Safety Report 4421142-0 (Version None)
Quarter: 2004Q3

REPORT INFORMATION
  Report Type: 
  Country: None (occurrence: None)
  Receive Date: 20040804
  Receipt Date: 20040726
  Transmission Date: 20050211
  Serious: Yes (Other)
  Sender: FDA-Public Use
  Company Number: 2004EU001432

PATIENT
  Age: 28 Year
  Sex: Male

DRUGS (1)
  1. FK506- OINTMENT (TACROLIMUS) OINTMENT 0.1% [Suspect]
     Indication: DERMATITIS ATOPIC
     Dosage: 0.10% BID TOPICAL
     Route: 061
     Dates: start: 20030915

REACTIONS (3)
  - BACTERAEMIA [None]
  - CIRCULATORY COLLAPSE [None]
  - IMPETIGO [None]
